FAERS Safety Report 5629655-0 (Version None)
Quarter: 2008Q1

REPORT INFORMATION
  Report Type: 
  Country: None (occurrence: None)
  Receive Date: 20080218
  Receipt Date: 20080212
  Transmission Date: 20080703
  Serious: Yes (Other)
  Sender: FDA-Public Use
  Company Number: B0486343A

PATIENT
  Age: 63 Year
  Sex: Female
  Weight: 56 kg

DRUGS (4)
  1. VALTREX [Suspect]
     Indication: GENITAL HERPES
     Dosage: 500MG TWICE PER DAY
     Route: 048
     Dates: start: 20070724, end: 20070727
  2. VALTREX [Suspect]
     Dosage: 500MG PER DAY
     Route: 048
     Dates: start: 20070801, end: 20071211
  3. VOLTAREN [Concomitant]
     Indication: BACK PAIN
     Dosage: 75MG PER DAY
     Route: 048
     Dates: start: 20070727, end: 20070731
  4. MARZULENE S [Concomitant]
     Indication: GASTRITIS
     Dosage: 1.34G PER DAY
     Route: 048
     Dates: start: 20070727, end: 20070731

REACTIONS (4)
  - ARRHYTHMIA [None]
  - CARDIAC DISORDER [None]
  - CHEST PAIN [None]
  - VENTRICULAR EXTRASYSTOLES [None]
